FAERS Safety Report 8685131 (Version 2)
Quarter: 2012Q4

REPORT INFORMATION
  Report Type: 
  Country: US (occurrence: US)
  Receive Date: 20120726
  Receipt Date: 20120905
  Transmission Date: 20130627
  Serious: Yes (Other)
  Sender: FDA-Public Use
  Company Number: US-PFIZER INC-2012176530

PATIENT
  Age: 71 Year
  Sex: Female
  Weight: 104.31 kg

DRUGS (6)
  1. CHANTIX [Suspect]
     Indication: SMOKING CESSATION THERAPY
     Dosage: 0.5 mg, 1x/day
     Route: 048
     Dates: start: 201206, end: 2012
  2. CHANTIX [Suspect]
     Dosage: 1 mg, 2x/day
     Route: 048
     Dates: start: 2012, end: 201207
  3. ASPIRIN [Concomitant]
     Indication: CARDIOVASCULAR EVENT PROPHYLAXIS
     Dosage: 81 mg, daily
     Route: 048
  4. LEXAPRO [Concomitant]
     Indication: DEPRESSION
     Dosage: 20 mg, daily
     Route: 048
  5. NORVASC [Concomitant]
     Indication: HYPERTENSION
     Dosage: 5 mg, daily
     Route: 048
  6. TRILIPIX [Concomitant]
     Dosage: 135 mg, daily
     Route: 048

REACTIONS (13)
  - Drug hypersensitivity [Recovered/Resolved]
  - Chest injury [Unknown]
  - Fall [Unknown]
  - Musculoskeletal chest pain [Unknown]
  - Contusion [Unknown]
  - Skin exfoliation [Unknown]
  - Idiosyncratic drug reaction [Recovered/Resolved]
  - Malaise [Recovered/Resolved]
  - Dyspepsia [Recovered/Resolved]
  - Apathy [Recovered/Resolved]
  - Gastrointestinal disorder [Recovered/Resolved]
  - Gastrointestinal motility disorder [Recovered/Resolved]
  - Drug intolerance [Recovered/Resolved]
